FAERS Safety Report 10044778 (Version 1)
Quarter: 2014Q1

REPORT INFORMATION
  Report Type: Spontaneous
  Country: US (occurrence: None)
  Receive Date: 20140306
  Receipt Date: 20140306
  Transmission Date: 20141002
  Serious: Yes (Hospitalization)
  Sender: FDA-Public Use
  Company Number: 163-21880-13053608

PATIENT
  Age: 77 Year
  Sex: Female

DRUGS (5)
  1. REVLIMID (LENALIDOMIDE) (15 MILLIGRAM, CAPSULES) [Suspect]
     Indication: PLASMA CELL MYELOMA
     Route: 048
     Dates: start: 20110316, end: 20120106
  2. DEXAMETHASONE (DEXAMETHASONE) [Concomitant]
  3. ANTIBIOTICS (ANTIBIOTICS) [Concomitant]
  4. PREDNISONE (PREDNISONE) [Concomitant]
  5. ASPIRIN [Concomitant]

REACTIONS (1)
  - Pulmonary embolism [None]
